FAERS Safety Report 4446039-1 (Version None)
Quarter: 2004Q3

REPORT INFORMATION
  Report Type: 
  Country: None (occurrence: None)
  Receive Date: 20040907
  Receipt Date: 20040902
  Transmission Date: 20050211
  Serious: No
  Sender: FDA-Public Use
  Company Number: 207499

PATIENT
  Age: 19 Year
  Sex: Female

DRUGS (1)
  1. XOLAIR [Suspect]
     Indication: ASTHMA
     Dosage: Q2W, SUBCUTANEOUS
     Route: 058

REACTIONS (1)
  - ANAPHYLACTIC REACTION [None]
